FAERS Safety Report 5825208-X (Version None)
Quarter: 2008Q3

REPORT INFORMATION
  Report Type: 
  Country: None (occurrence: None)
  Receive Date: 20080729
  Receipt Date: 20080721
  Transmission Date: 20090109
  Serious: Yes (Other)
  Sender: FDA-Public Use
  Company Number: PHHY2008DE14811

PATIENT
  Sex: Female

DRUGS (4)
  1. ZOMETA [Suspect]
     Indication: METASTASES TO BONE
     Dosage: 4 MG, QMO
     Route: 042
     Dates: start: 20050427
  2. ZOMETA [Suspect]
     Indication: BREAST CANCER
  3. ACETYLSALICYLIC ACID SRT [Concomitant]
  4. LEVOTHYROXINE SODIUM [Concomitant]

REACTIONS (6)
  - DENTAL TREATMENT [None]
  - GINGIVITIS [None]
  - HIP SURGERY [None]
  - PURULENT DISCHARGE [None]
  - TOOTH EXTRACTION [None]
  - TUMOUR MARKER INCREASED [None]
